FAERS Safety Report 8223381-X (Version None)
Quarter: 2012Q1

REPORT INFORMATION
  Report Type: 
  Country: None (occurrence: None)
  Receive Date: 20120312
  Receipt Date: 20120305
  Transmission Date: 20120608
  Serious: Yes (Hospitalization)
  Sender: FDA-Public Use
  Company Number: 7117149

PATIENT
  Age: 29 Year
  Sex: Female

DRUGS (2)
  1. INSULIN [Concomitant]
  2. LEVOTHYROXINE SODIUM [Suspect]
     Indication: HYPOTHYROIDISM
     Dosage: 200 MCG (200 MCG, 1 IN 1 D)

REACTIONS (5)
  - POLYMORPHIC ERUPTION OF PREGNANCY [None]
  - CAESAREAN SECTION [None]
  - PRE-ECLAMPSIA [None]
  - MATERNAL EXPOSURE TIMING UNSPECIFIED [None]
  - ANAEMIA [None]
